FAERS Safety Report 7311111-5 (Version None)
Quarter: 2011Q1

REPORT INFORMATION
  Report Type: 
  Country: None (occurrence: None)
  Receive Date: 20110224
  Receipt Date: 20110215
  Transmission Date: 20110831
  Serious: Yes (Hospitalization)
  Sender: FDA-Public Use
  Company Number: CO-ROCHE-758869

PATIENT
  Sex: Male

DRUGS (4)
  1. CYCLOSPORINE [Concomitant]
     Dosage: FREQUENCY: QD
     Route: 048
  2. MYCOPHENOLATE MOFETIL [Suspect]
     Indication: LIVER TRANSPLANT
     Route: 048
     Dates: start: 20070309
  3. CALCITRIOL [Concomitant]
     Dosage: FREQUENCY: QD
     Route: 048
  4. CALCIUM CARBONATE [Concomitant]
     Dosage: FREQUENCY: QD
     Route: 048

REACTIONS (2)
  - GALLBLADDER DISORDER [None]
  - PRURITUS GENERALISED [None]
